FAERS Safety Report 8313368-0 (Version None)
Quarter: 2012Q2

REPORT INFORMATION
  Report Type: 
  Country: None (occurrence: None)
  Receive Date: 20120426
  Receipt Date: 20120419
  Transmission Date: 20120825
  Serious: Yes (Other)
  Sender: FDA-Public Use
  Company Number: PHHY2012BR033658

PATIENT
  Sex: Male
  Weight: 76 kg

DRUGS (1)
  1. TEGRETOL [Suspect]
     Indication: NEURALGIA
     Dosage: 3 DF, QD
     Dates: start: 20120416, end: 20120419

REACTIONS (1)
  - HEARING IMPAIRED [None]
